FAERS Safety Report 12240362 (Version 1)
Quarter: 2016Q2

REPORT INFORMATION
  Report Type: Report from Study
  Country: US (occurrence: US)
  Receive Date: 20160405
  Receipt Date: 20160405
  Transmission Date: 20160815
  Serious: No
  Sender: FDA-Public Use
  Company Number: GXBR2016US000983

PATIENT
  Sex: Male

DRUGS (1)
  1. OMNITROPE [Suspect]
     Active Substance: SOMATROPIN
     Indication: GROWTH HORMONE DEFICIENCY
     Dosage: 1.3 MG, SIX DAYS A WEEK
     Route: 065
     Dates: start: 20160306

REACTIONS (3)
  - Anxiety [Unknown]
  - Crying [Unknown]
  - Injection site pain [Not Recovered/Not Resolved]
